FAERS Safety Report 7712320-3 (Version None)
Quarter: 2011Q3

REPORT INFORMATION
  Report Type: 
  Country: None (occurrence: None)
  Receive Date: 20110826
  Receipt Date: 20110819
  Transmission Date: 20111222
  Serious: Yes (Hospitalization)
  Sender: FDA-Public Use
  Company Number: US-ROCHE-702910

PATIENT
  Sex: Female

DRUGS (14)
  1. COLACE [Concomitant]
     Dates: start: 20070123
  2. NEORAL [Suspect]
     Route: 048
     Dates: start: 20070120
  3. LISINOPRIL [Concomitant]
     Dates: start: 20081124
  4. HYDROCODONE BITARTRATE [Concomitant]
     Dates: start: 20080424
  5. METOPROLOL [Concomitant]
     Dates: start: 20071215
  6. PEPCID [Concomitant]
     Dates: start: 20080206
  7. MYCOPHENOLATE MOFETIL [Suspect]
     Route: 048
     Dates: start: 20070120
  8. NEURONTIN [Concomitant]
     Dates: start: 20091211
  9. PAMELOR [Concomitant]
     Dates: start: 20091211
  10. PREDNISONE [Suspect]
     Route: 048
     Dates: start: 20070326
  11. OXYCONTIN [Concomitant]
     Dates: start: 20091211
  12. PRAVASTATIN [Concomitant]
     Dates: start: 20081225
  13. XANAX [Concomitant]
     Dates: start: 20070501
  14. NITROGLYCERIN [Concomitant]

REACTIONS (4)
  - CHEST PAIN [None]
  - BLOOD CREATININE INCREASED [None]
  - TRANSPLANT REJECTION [None]
  - URINARY TRACT INFECTION [None]
